FAERS Safety Report 25551159 (Version 2)
Quarter: 2025Q3

REPORT INFORMATION
  Report Type: Spontaneous
  Country: US (occurrence: US)
  Receive Date: 20250714
  Receipt Date: 20250717
  Transmission Date: 20251021
  Serious: Yes (Other)
  Sender: PFIZER
  Company Number: US-PFIZER INC-202400079032

PATIENT
  Age: 86 Year
  Sex: Female
  Weight: 72.57 kg

DRUGS (4)
  1. IBRANCE [Suspect]
     Active Substance: PALBOCICLIB
     Indication: Breast cancer metastatic
  2. IBRANCE [Suspect]
     Active Substance: PALBOCICLIB
     Indication: Lung neoplasm malignant
     Dates: start: 201906
  3. IBRANCE [Suspect]
     Active Substance: PALBOCICLIB
     Route: 048
     Dates: end: 20250618
  4. METOPROLOL [Concomitant]
     Active Substance: METOPROLOL
     Indication: Heart rate increased
     Dosage: 25 MG, 2X/DAY
     Dates: start: 2019

REACTIONS (5)
  - Breast cancer metastatic [Unknown]
  - Malignant neoplasm progression [Unknown]
  - Diarrhoea [Unknown]
  - Constipation [Unknown]
  - Illness [Unknown]
